FAERS Safety Report 20533657 (Version 1)
Quarter: 2022Q1

REPORT INFORMATION
  Report Type: Spontaneous
  Country: US (occurrence: US)
  Receive Date: 20220301
  Receipt Date: 20220301
  Transmission Date: 20220423
  Serious: No
  Sender: FDA-Public Use
  Company Number: US-PFIZER INC-2021259764

PATIENT
  Age: 1 Year
  Sex: Male
  Weight: 8.685 kg

DRUGS (2)
  1. EUCRISA [Suspect]
     Active Substance: CRISABOROLE
     Indication: Dermatitis atopic
     Dosage: UNK UNK, 2X/DAY
     Route: 061
     Dates: start: 20210303, end: 202104
  2. AQUAPHOR [WHITE SOFT PARAFFIN] [Concomitant]
     Indication: Dermatitis atopic
     Dosage: UNK
     Dates: start: 202103

REACTIONS (1)
  - Drug ineffective [Unknown]
